FAERS Safety Report 5660300-4 (Version None)
Quarter: 2008Q1

REPORT INFORMATION
  Report Type: 
  Country: None (occurrence: None)
  Receive Date: 20080212
  Receipt Date: 20071022
  Transmission Date: 20080703
  Serious: Yes (Other)
  Sender: FDA-Public Use
  Company Number: US-WYE-H00784907

PATIENT
  Age: 30 Year
  Sex: Female

DRUGS (1)
  1. LYBREL [Suspect]
     Indication: CONTRACEPTION
     Dosage: ORAL
     Route: 048
     Dates: start: 20070822

REACTIONS (1)
  - MENOMETRORRHAGIA [None]
